FAERS Safety Report 10466849 (Version 1)
Quarter: 2014Q2

REPORT INFORMATION
  Report Type: Spontaneous
  Country: US (occurrence: None)
  Receive Date: 20140613
  Receipt Date: 20140613
  Transmission Date: 20141212
  Serious: No
  Sender: FDA-Public Use
  Company Number: US-2014-102823

PATIENT
  Age: 2 Year
  Sex: Female

DRUGS (2)
  1. VIMIZIM [Suspect]
     Indication: PRODUCT USED FOR UNKNOWN INDICATION
     Route: 041
  2. ZYRTEC (CETIRIZINE HYDROCHLORIDE) [Concomitant]

REACTIONS (1)
  - Cough [None]
